FAERS Safety Report 4982293-5 (Version None)
Quarter: 2006Q2

REPORT INFORMATION
  Report Type: 
  Country: None (occurrence: None)
  Receive Date: 20060419
  Receipt Date: 20060327
  Transmission Date: 20061013
  Serious: Yes (Hospitalization)
  Sender: FDA-Public Use
  Company Number: US200603006639

PATIENT
  Age: 73 Year
  Sex: Female

DRUGS (6)
  1. FORTEO [Suspect]
     Indication: OSTEOPOROSIS
     Dates: start: 20040701
  2. FORTEO PEN (FORTEO PEN) PEN, DISPOSABLE [Concomitant]
  3. LASIX (FUROSEMIDE, FUROSEMIDE SODIUM) [Concomitant]
  4. VITAMINS [Concomitant]
  5. CALCIUM (CALCIUM) [Concomitant]
  6. ASPIRIN [Concomitant]

REACTIONS (7)
  - ATELECTASIS [None]
  - CONDITION AGGRAVATED [None]
  - OEDEMA PERIPHERAL [None]
  - PNEUMONIA [None]
  - RESTLESS LEGS SYNDROME [None]
  - STAPHYLOCOCCAL INFECTION [None]
  - TOTAL LUNG CAPACITY DECREASED [None]
